FAERS Safety Report 9503287 (Version 1)
Quarter: 2013Q3

REPORT INFORMATION
  Report Type: Spontaneous
  Country: DE (occurrence: DE)
  Receive Date: 20130906
  Receipt Date: 20130906
  Transmission Date: 20140515
  Serious: No
  Sender: FDA-Public Use
  Company Number: DE-TAKEDA-2013TUS000089

PATIENT
  Age: 33 Year
  Sex: Male

DRUGS (3)
  1. ADENURIC [Suspect]
     Dosage: 40 MG, QD
     Route: 048
     Dates: start: 20130723
  2. RAMIPRIL [Concomitant]
     Indication: HYPERTENSION
     Dosage: 2.5 MG, UNK
     Dates: start: 201108
  3. L-THYROX [Concomitant]
     Indication: HYPOTHYROIDISM
     Dosage: 50 ?G, UNK
     Dates: start: 201108

REACTIONS (2)
  - Skin irritation [Recovered/Resolved]
  - Pruritus [Recovered/Resolved]
